FAERS Safety Report 16253979 (Version 3)
Quarter: 2023Q2

REPORT INFORMATION
  Report Type: Spontaneous
  Country: IE (occurrence: IE)
  Receive Date: 20190430
  Receipt Date: 20230601
  Transmission Date: 20230721
  Serious: Yes (Disabling, Other)
  Sender: FDA-Public Use
  Company Number: IE-BAXTER-2019BAX008069

PATIENT
  Age: 32 Year
  Sex: Male

DRUGS (14)
  1. SODIUM CHLORIDE [Suspect]
     Active Substance: SODIUM CHLORIDE
     Indication: Medication dilution
     Dosage: 50 MILLILITRE, ONCE DIALY, DOSAGE FORM: SOLUTION FOR INFUSION
     Route: 042
     Dates: start: 20190404, end: 201904
  2. SODIUM CHLORIDE [Suspect]
     Active Substance: SODIUM CHLORIDE
     Dosage: 50 MILLILITRE, ONCE DIALY, DOSAGE FORM: SOLUTION FOR INFUSION
     Route: 042
     Dates: start: 20190404, end: 201904
  3. SODIUM CHLORIDE [Suspect]
     Active Substance: SODIUM CHLORIDE
     Dosage: 50 MILLILITRE, ONCE DIALY, DOSAGE FORM: SOLUTION FOR INFUSION
     Route: 042
     Dates: start: 20190404, end: 201904
  4. SODIUM CHLORIDE [Suspect]
     Active Substance: SODIUM CHLORIDE
     Dosage: 50 MILLILITRE, ONCE DIALY, DOSAGE FORM: SOLUTION FOR INFUSION
     Route: 042
     Dates: start: 20190404, end: 201904
  5. SODIUM CHLORIDE [Suspect]
     Active Substance: SODIUM CHLORIDE
     Dosage: 50 MILLILITRE, ONCE DIALY, DOSAGE FORM: SOLUTION FOR INFUSION
     Route: 042
     Dates: start: 20190404, end: 201904
  6. SODIUM CHLORIDE [Suspect]
     Active Substance: SODIUM CHLORIDE
     Dosage: 50 MILLILITRE, ONCE DIALY, DOSAGE FORM: SOLUTION FOR INFUSION
     Route: 042
     Dates: start: 20190404, end: 201904
  7. AMIKACIN [Suspect]
     Active Substance: AMIKACIN
     Indication: Product used for unknown indication
     Dosage: 800 MILLIGRAM, ONCE DAILY, DOSAGE FORM: SOLUTION FOR INJECTION
     Route: 042
     Dates: start: 20190404, end: 20190417
  8. AMIKACIN [Suspect]
     Active Substance: AMIKACIN
     Dosage: 800 MILLIGRAM, ONCE DAILY
     Route: 042
     Dates: start: 20190404, end: 201904
  9. AMIKACIN [Suspect]
     Active Substance: AMIKACIN
     Dosage: 800 MILLIGRAM, ONCE DAILY
     Route: 042
     Dates: start: 20190404, end: 201904
  10. AMIKACIN [Suspect]
     Active Substance: AMIKACIN
     Dosage: 800 MILLIGRAM, ONCE DAILY, DOSAGE FORM: SOLUTION FOR INJECTION
     Route: 042
     Dates: start: 20190404, end: 20190417
  11. AMIKACIN [Suspect]
     Active Substance: AMIKACIN
     Dosage: 800 MILLIGRAM, ONCE DAILY, DOSAGE FORM: SOLUTION FOR INJECTION
     Route: 042
     Dates: start: 20190404, end: 20190417
  12. AMIKACIN [Suspect]
     Active Substance: AMIKACIN
     Dosage: 800 MILLIGRAM, ONCE DAILY, DOSAGE FORM: SOLUTION FOR INJECTION
     Route: 042
     Dates: start: 20190404, end: 20190417
  13. AMIKACIN [Suspect]
     Active Substance: AMIKACIN
     Dosage: 800 MILLIGRAM, ONCE DAILY, DOSAGE FORM: SOLUTION FOR INJECTION
     Route: 042
     Dates: start: 20190404, end: 20190417
  14. AMIKACIN [Suspect]
     Active Substance: AMIKACIN
     Dosage: 800 MILLIGRAM, ONCE DAILY, DOSAGE FORM: SOLUTION FOR INJECTION
     Route: 042
     Dates: start: 20190404, end: 20190417

REACTIONS (1)
  - Deafness [Unknown]

NARRATIVE: CASE EVENT DATE: 20190417
